FAERS Safety Report 17585740 (Version 1)
Quarter: 2020Q1

REPORT INFORMATION
  Report Type: Spontaneous
  Country: IE (occurrence: IE)
  Receive Date: 20200323
  Receipt Date: 20200323
  Transmission Date: 20200409
  Serious: Yes (Hospitalization)
  Sender: FDA-Public Use
  Company Number: IE-CUMBERLAND-2020-IE-000001

PATIENT
  Age: 72 Year
  Sex: Female

DRUGS (1)
  1. NORDIMET 20 MG SOLUTION FOR INJECTION IN PRE-FILLED PEN [Suspect]
     Active Substance: METHOTREXATE
     Dates: start: 201902, end: 20200122

REACTIONS (1)
  - Asthma [Unknown]

NARRATIVE: CASE EVENT DATE: 201911
